FAERS Safety Report 9411135 (Version 1)
Quarter: 2013Q3

REPORT INFORMATION
  Report Type: Report from Study
  Country: AU (occurrence: AU)
  Receive Date: 20130721
  Receipt Date: 20130721
  Transmission Date: 20140515
  Serious: Yes (Death, Hospitalization, Disabling, Other)
  Sender: FDA-Public Use
  Company Number: PHHY2013AU063098

PATIENT
  Sex: Male

DRUGS (1)
  1. CLOZARIL [Suspect]
     Dosage: 400 MG, UNK
     Dates: start: 20130220

REACTIONS (29)
  - Pneumonia [Fatal]
  - Asthma [Fatal]
  - Respiratory arrest [Fatal]
  - Chronic obstructive pulmonary disease [Fatal]
  - Hyperventilation [Fatal]
  - Obesity [Fatal]
  - Lower respiratory tract infection [Fatal]
  - Malaise [Unknown]
  - Left ventricular hypertrophy [Unknown]
  - Sinus tachycardia [Unknown]
  - Aspartate aminotransferase increased [Unknown]
  - Blood calcium decreased [Unknown]
  - Blood carbon monoxide increased [Unknown]
  - Blood chloride decreased [Unknown]
  - Blood creatine decreased [Unknown]
  - Blood creatine phosphokinase increased [Unknown]
  - Blood magnesium increased [Unknown]
  - Blood phosphorus increased [Unknown]
  - Gamma-glutamyltransferase increased [Unknown]
  - PO2 decreased [Unknown]
  - PO2 increased [Unknown]
  - Lymphocyte count increased [Unknown]
  - Haemoglobin increased [Unknown]
  - Blood glucose increased [Unknown]
  - Haemoglobin decreased [Unknown]
  - Platelet count decreased [Unknown]
  - Monocyte count increased [Unknown]
  - Neutrophil count increased [Unknown]
  - White blood cell count increased [Unknown]
